FAERS Safety Report 5360913-3 (Version None)
Quarter: 2007Q2

REPORT INFORMATION
  Report Type: 
  Country: None (occurrence: None)
  Receive Date: 20070618
  Receipt Date: 20070608
  Transmission Date: 20071010
  Serious: Yes (Death, Hospitalization, Other)
  Sender: FDA-Public Use
  Company Number: GB-PFIZER INC-2006050169

PATIENT
  Sex: Female
  Weight: 52 kg

DRUGS (11)
  1. SILDENAFIL (PAH) [Suspect]
     Indication: PULMONARY HYPERTENSION
     Route: 048
  2. TRACLEER [Suspect]
     Indication: PULMONARY HYPERTENSION
     Route: 048
     Dates: start: 20000101, end: 20060301
  3. DILTIAZEM [Concomitant]
     Route: 048
  4. BUMETANIDE [Concomitant]
     Route: 048
  5. AMILORIDE HYDROCHLORIDE [Concomitant]
     Route: 048
  6. QUININE SULFATE [Concomitant]
     Route: 048
  7. SPIRONOLACTONE [Concomitant]
     Route: 048
  8. LEVOTHYROXINE SODIUM [Concomitant]
     Route: 048
  9. ZOPICLONE [Concomitant]
     Route: 048
  10. IMMUNOGLOBULINS [Concomitant]
     Route: 048
  11. ERYTHROMYCIN [Concomitant]
     Route: 065

REACTIONS (35)
  - ABDOMINAL PAIN [None]
  - ALANINE AMINOTRANSFERASE INCREASED [None]
  - AORTIC ARTERIOSCLEROSIS [None]
  - ARTERIOSCLEROSIS CORONARY ARTERY [None]
  - CARDIAC VALVE DISEASE [None]
  - CARDIAC VALVE VEGETATION [None]
  - CREST SYNDROME [None]
  - CYANOSIS [None]
  - DIARRHOEA [None]
  - DRUG INEFFECTIVE [None]
  - EMPHYSEMA [None]
  - EPSTEIN-BARR VIRUS INFECTION [None]
  - FLATULENCE [None]
  - GENERAL PHYSICAL HEALTH DETERIORATION [None]
  - HEPATIC ATROPHY [None]
  - HEPATIC CONGESTION [None]
  - HEPATIC FAILURE [None]
  - HEPATITIS B [None]
  - HEPATOMEGALY [None]
  - LIVIDITY [None]
  - METABOLIC ACIDOSIS [None]
  - MULTI-ORGAN FAILURE [None]
  - MUSCULOSKELETAL PAIN [None]
  - PULMONARY FIBROSIS [None]
  - PULMONARY HYPERTENSION [None]
  - RED BLOOD CELL COUNT INCREASED [None]
  - RENAL TUBULAR NECROSIS [None]
  - RIGHT VENTRICULAR FAILURE [None]
  - RIGHT VENTRICULAR HYPERTROPHY [None]
  - SCLERODERMA [None]
  - SKIN ATROPHY [None]
  - SKIN DISCOLOURATION [None]
  - SPLEEN CONGESTION [None]
  - SPLENOMEGALY [None]
  - VOMITING [None]
